FAERS Safety Report 11457274 (Version 1)
Quarter: 2015Q3

REPORT INFORMATION
  Report Type: Spontaneous
  Country: US (occurrence: None)
  Receive Date: 20150902
  Receipt Date: 20150902
  Transmission Date: 20151125
  Serious: No
  Sender: FDA-Public Use
  Company Number: 1210513-2015-00154

PATIENT
  Sex: Female

DRUGS (1)
  1. SHEFFIELD TRIPLE ANTIBIOTIC [Suspect]
     Active Substance: BACITRACIN ZINC\NEOMYCIN SULFATE\POLYMYXIN B SULFATE
     Route: 061
     Dates: start: 20150809, end: 20150814

REACTIONS (2)
  - Rash erythematous [None]
  - Rash [None]

NARRATIVE: CASE EVENT DATE: 20150814
